FAERS Safety Report 16387952 (Version 1)
Quarter: 2019Q2

REPORT INFORMATION
  Report Type: Spontaneous
  Country: US (occurrence: JP)
  Receive Date: 20190604
  Receipt Date: 20190604
  Transmission Date: 20190711
  Serious: Yes (Hospitalization, Other)
  Sender: FDA-Public Use
  Company Number: US-SUNOVION-2019SUN002180

PATIENT
  Age: 79 Year
  Sex: Male

DRUGS (2)
  1. GLYCOPYRROLATE. [Suspect]
     Active Substance: GLYCOPYRROLATE
     Dosage: UNK
     Route: 048
     Dates: start: 20190522
  2. GLYCOPYRROLATE. [Suspect]
     Active Substance: GLYCOPYRROLATE
     Indication: CHRONIC OBSTRUCTIVE PULMONARY DISEASE
     Dosage: 50 ?G
     Route: 055
     Dates: start: 20190521

REACTIONS (6)
  - Fall [Unknown]
  - Incorrect route of product administration [Recovered/Resolved]
  - Epilepsy [Unknown]
  - Cognitive disorder [Unknown]
  - Concomitant disease aggravated [Unknown]
  - Subdural haematoma [Unknown]

NARRATIVE: CASE EVENT DATE: 20190521
